FAERS Safety Report 7875597-X (Version None)
Quarter: 2011Q4

REPORT INFORMATION
  Report Type: 
  Country: None (occurrence: None)
  Receive Date: 20111031
  Receipt Date: 20111017
  Transmission Date: 20120403
  Serious: Yes (Death, Other)
  Sender: FDA-Public Use
  Company Number: US-ELI_LILLY_AND_COMPANY-US201101004951

PATIENT
  Sex: Female
  Weight: 48.1 kg

DRUGS (22)
  1. LEVOTHYROXINE SODIUM [Concomitant]
     Dosage: 125 UG, QD
  2. CALCITONIN SALMON [Concomitant]
  3. AVINZA [Concomitant]
     Dosage: 60 MG, QD
  4. FUROSEMIDE [Concomitant]
     Dosage: 40 MG, OTHER
  5. SUMATRIPTAN SUCCINATE [Concomitant]
     Dosage: 5 MG, OTHER
  6. TIZANIDINE HCL [Concomitant]
     Dosage: 4 MG, QD
  7. RELISTOR [Concomitant]
  8. CYMBALTA [Concomitant]
     Dosage: 60 MG, BID
  9. POTASSIUM CITRATE [Concomitant]
     Dosage: 10 MEQ, QD
  10. ESTRADIOL [Concomitant]
     Dosage: 2 MG, OTHER
  11. PANTOPRAZOLE SODIUM [Concomitant]
     Dosage: 40 MG, QD
  12. ALLERTEC [Concomitant]
  13. BETHANECHOL CHLORIDE [Concomitant]
     Dosage: 25 MG, QD
  14. FORTEO [Suspect]
     Indication: OSTEOPOROSIS
     Dosage: 20 UG, QD
     Route: 058
     Dates: start: 20101201
  15. ACETAMINOPHEN AND HYDROCODONE BITARTRATE [Concomitant]
     Dosage: UNK
  16. AMITIZA [Concomitant]
     Dosage: 24 MG, BID
  17. CYCLOPHOSPHAMIDE [Concomitant]
  18. LIDODERM [Concomitant]
     Dosage: 700 MG, OTHER
  19. SINGULAIR [Concomitant]
     Dosage: 10 MG, QD
  20. PROMETRIUM [Concomitant]
  21. VITAMIN D [Concomitant]
     Indication: VITAMIN D DECREASED
     Dosage: UNK UNK, OTHER
  22. FLECTOR                            /00372302/ [Concomitant]

REACTIONS (3)
  - PANCREATIC CARCINOMA METASTATIC [None]
  - VIRAL INFECTION [None]
  - NASOPHARYNGITIS [None]
